FAERS Safety Report 20761429 (Version 1)
Quarter: 2022Q2

REPORT INFORMATION
  Report Type: Other
  Country: CA (occurrence: CA)
  Receive Date: 20220428
  Receipt Date: 20220428
  Transmission Date: 20220721
  Serious: Yes (Other)
  Sender: FDA-Public Use
  Company Number: CA-CELLTRION INC.-2022CA005014

PATIENT

DRUGS (9)
  1. TRASTUZUMAB [Suspect]
     Active Substance: TRASTUZUMAB
     Indication: Adenocarcinoma
     Dosage: 6 MG 1 EVERY 3 WEEKS
     Route: 042
  2. TRASTUZUMAB [Suspect]
     Active Substance: TRASTUZUMAB
     Indication: Vulval disorder
     Dosage: 6 MG/KG 1 EVERY 3 WEEKS
     Route: 042
  3. PACLITAXEL [Suspect]
     Active Substance: PACLITAXEL
     Indication: Vulval disorder
     Dosage: 175 MG/M2 1 EVERY 1 WEEK
     Route: 042
  4. PERTUZUMAB [Suspect]
     Active Substance: PERTUZUMAB
     Indication: Vulval disorder
     Dosage: 420 MG 1 EVERY 3 WEEKS
     Route: 042
  5. ZOLEDRONIC ACID [Suspect]
     Active Substance: ZOLEDRONIC ACID
     Indication: Vulval disorder
     Dosage: 4 MG
     Route: 042
  6. LETROZOLE [Concomitant]
     Active Substance: LETROZOLE
     Dosage: 2.5 MG 1 EVERY 1 DAY
     Route: 048
  7. PACLITAXEL [Concomitant]
     Active Substance: PACLITAXEL
     Dosage: 175 MG 1 EVERY 3 MONTHS
     Route: 042
  8. PERTUZUMAB [Concomitant]
     Active Substance: PERTUZUMAB
     Dosage: 420 MG 1 EVERY 3 WEEKS
     Route: 042
  9. ZOLEDRONIC ACID [Concomitant]
     Active Substance: ZOLEDRONIC ACID
     Dosage: 4 MG 1 EVERY 3 MONTHS
     Route: 042

REACTIONS (4)
  - Neuropathy peripheral [Unknown]
  - Off label use [Unknown]
  - Therapy partial responder [Unknown]
  - Off label use [Unknown]
